FAERS Safety Report 5844267-1 (Version None)
Quarter: 2008Q3

REPORT INFORMATION
  Report Type: 
  Country: None (occurrence: None)
  Receive Date: 20080813
  Receipt Date: 20080806
  Transmission Date: 20090109
  Serious: Yes (Other)
  Sender: FDA-Public Use
  Company Number: FR-PFIZER INC-2008066329

PATIENT
  Age: 48 Year
  Sex: Male

DRUGS (1)
  1. TAHOR [Suspect]
     Indication: HYPERCHOLESTEROLAEMIA
     Dates: start: 20080501, end: 20080101

REACTIONS (1)
  - MUSCLE RUPTURE [None]
